FAERS Safety Report 8895287 (Version 2)
Quarter: 2012Q4

REPORT INFORMATION
  Report Type: 
  Country: US (occurrence: US)
  Receive Date: 20121108
  Receipt Date: 20121122
  Transmission Date: 20130627
  Serious: Yes (Death, Hospitalization)
  Sender: FDA-Public Use
  Company Number: US-B.I. PHARMACEUTICALS,INC./RIDGEFIELD-2012-BP-27381BP

PATIENT
  Age: 58 Year
  Sex: Male

DRUGS (5)
  1. PRADAXA [Suspect]
     Indication: MITRAL VALVE REPLACEMENT
     Dosage: 300 mg
     Dates: end: 201106
  2. INSULIN [Concomitant]
  3. ASPIRIN [Concomitant]
  4. COREG [Concomitant]
  5. SIMVASTATIN [Concomitant]

REACTIONS (1)
  - Mitral valve disease [Fatal]
